FAERS Safety Report 8554950-5 (Version None)
Quarter: 2012Q3

REPORT INFORMATION
  Report Type: 
  Country: None (occurrence: None)
  Receive Date: 20120726
  Receipt Date: 20120726
  Transmission Date: 20120928
  Serious: No
  Sender: FDA-Public Use
  Company Number: None

PATIENT
  Sex: Female
  Weight: 58.9676 kg

DRUGS (9)
  1. WELLBUTRIN SR [Concomitant]
  2. LATUDA [Suspect]
     Indication: PSYCHOTIC DISORDER
     Dosage: LURASIDONE 40MG ONE DAILY PO (ORAL)
     Route: 048
     Dates: start: 20120701, end: 20120704
  3. ORAL CONTRACEPTIVE [Concomitant]
  4. QUAR [Concomitant]
  5. ALBUTEROL [Concomitant]
  6. ZYZRL [Concomitant]
  7. SUBOXONE [Concomitant]
  8. CLONAZEPAM [Concomitant]
  9. SINGULAIR [Concomitant]

REACTIONS (4)
  - TONGUE DISORDER [None]
  - DYSPNOEA [None]
  - MUSCLE SPASMS [None]
  - OEDEMA PERIPHERAL [None]
